FAERS Safety Report 13859668 (Version 3)
Quarter: 2018Q3

REPORT INFORMATION
  Report Type: Spontaneous
  Country: IT (occurrence: IT)
  Receive Date: 20170811
  Receipt Date: 20180703
  Transmission Date: 20181010
  Serious: Yes (Other)
  Sender: FDA-Public Use
  Company Number: IT-VIFOR (INTERNATIONAL) INC.-VIT-2017-08331

PATIENT
  Age: 78 Year
  Sex: Male

DRUGS (9)
  1. LASIX [Concomitant]
     Active Substance: FUROSEMIDE
  2. DIDROGYL [Concomitant]
     Active Substance: CALCIFEDIOL
  3. LEVEMIR [Concomitant]
     Active Substance: INSULIN DETEMIR
     Dosage: LEVEMIR 100 UNITS/ML SOLUTION FOR INJECTION IN CARTRIDGE
  4. TRADJENTA [Concomitant]
     Active Substance: LINAGLIPTIN
  5. GLUCOBAY [Concomitant]
     Active Substance: ACARBOSE
  6. ZYLORIC [Concomitant]
     Active Substance: ALLOPURINOL
  7. VELPHORO [Suspect]
     Active Substance: FERRIC OXYHYDROXIDE
     Indication: HYPERPHOSPHATAEMIA
     Route: 048
     Dates: start: 20170501, end: 20170510
  8. SODIUM BICARBONATE. [Concomitant]
     Active Substance: SODIUM BICARBONATE
  9. ROCALTROL [Concomitant]
     Active Substance: CALCITRIOL

REACTIONS (5)
  - Dizziness [Recovering/Resolving]
  - Diarrhoea [Recovering/Resolving]
  - Hypotension [Recovering/Resolving]
  - Hyperhidrosis [Recovering/Resolving]
  - Loss of consciousness [Recovering/Resolving]

NARRATIVE: CASE EVENT DATE: 20170510
